FAERS Safety Report 5769058-1 (Version None)
Quarter: 2008Q2

REPORT INFORMATION
  Report Type: 
  Country: None (occurrence: None)
  Receive Date: 20080612
  Receipt Date: 20080320
  Transmission Date: 20081010
  Serious: Yes (Hospitalization)
  Sender: FDA-Public Use
  Company Number: US-ABBOTT-08P-163-0443463-00

PATIENT
  Sex: Female
  Weight: 81.266 kg

DRUGS (5)
  1. HUMIRA [Suspect]
     Indication: CROHN'S DISEASE
     Route: 058
     Dates: start: 20071001
  2. HUMIRA [Suspect]
  3. HUMIRA [Suspect]
     Dates: end: 20080221
  4. LEXIPRIL [Concomitant]
     Indication: DEPRESSION
     Route: 048
     Dates: end: 20071203
  5. MESALAMINE [Concomitant]
     Indication: CROHN'S DISEASE
     Route: 048

REACTIONS (11)
  - COUGH [None]
  - DIZZINESS [None]
  - FATIGUE [None]
  - GALLBLADDER ENLARGEMENT [None]
  - HEPATITIS [None]
  - NAUSEA [None]
  - PAIN [None]
  - PYREXIA [None]
  - VIRAL INFECTION [None]
  - VOMITING [None]
  - WEIGHT DECREASED [None]
